FAERS Safety Report 11205537 (Version 8)
Quarter: 2016Q1

REPORT INFORMATION
  Report Type: Spontaneous
  Country: US (occurrence: US)
  Receive Date: 20150622
  Receipt Date: 20160121
  Transmission Date: 20160525
  Serious: Yes (Hospitalization, Other)
  Sender: FDA-Public Use
  Company Number: US-PFIZER INC-2015203218

PATIENT
  Age: 78 Year
  Sex: Female

DRUGS (7)
  1. OXYCODONE [Concomitant]
     Active Substance: OXYCODONE
     Dosage: 5 MG, AS NEEDED (EVERY 6 HOURS)
     Route: 048
  2. INLYTA [Suspect]
     Active Substance: AXITINIB
     Indication: METASTATIC RENAL CELL CARCINOMA
     Dosage: 7 MG, 2X/DAY
     Route: 048
     Dates: start: 2014
  3. INLYTA [Suspect]
     Active Substance: AXITINIB
     Dosage: 5 MG, 2X/DAY (TWO 5 MG TABS)
     Route: 048
  4. CHONDROITIN GLUCOSAMIN [Concomitant]
     Active Substance: CHONDROITIN SULFATE A\GLUCOSAMINE
     Indication: ARTHRITIS
     Dosage: 1 DF, 1X/DAY
     Route: 048
  5. LOSARTAN. [Concomitant]
     Active Substance: LOSARTAN
     Indication: HYPERTENSION
     Dosage: 50 MG, 2X/DAY (EVERY 12 HOURS)
     Route: 048
  6. LOSARTAN POTASSIUM. [Concomitant]
     Active Substance: LOSARTAN POTASSIUM
     Dosage: UNK
  7. HYDROCHLOROTHIAZIDE. [Concomitant]
     Active Substance: HYDROCHLOROTHIAZIDE
     Dosage: 12.5 MG, 1X/DAY
     Route: 048

REACTIONS (7)
  - Disease progression [Not Recovered/Not Resolved]
  - Metastatic renal cell carcinoma [Not Recovered/Not Resolved]
  - Oropharyngeal pain [Unknown]
  - Pain [Not Recovered/Not Resolved]
  - Malaise [Unknown]
  - Patella fracture [Unknown]
  - Diarrhoea [Unknown]

NARRATIVE: CASE EVENT DATE: 201505
